FAERS Safety Report 15517008 (Version 1)
Quarter: 2018Q4

REPORT INFORMATION
  Report Type: Spontaneous
  Country: DE (occurrence: DE)
  Receive Date: 20181017
  Receipt Date: 20181017
  Transmission Date: 20190205
  Serious: Yes (Other)
  Sender: FDA-Public Use
  Company Number: DE-EMD SERONO-9047216

PATIENT
  Age: 84 Year
  Sex: Male

DRUGS (1)
  1. AVELUMAB [Suspect]
     Active Substance: AVELUMAB
     Indication: NEUROENDOCRINE CARCINOMA OF THE SKIN
     Dates: start: 201801

REACTIONS (2)
  - Disease progression [Unknown]
  - Soft tissue infection [Unknown]

NARRATIVE: CASE EVENT DATE: 2018
